FAERS Safety Report 5929589-8 (Version None)
Quarter: 2008Q4

REPORT INFORMATION
  Report Type: 
  Country: None (occurrence: None)
  Receive Date: 20081024
  Receipt Date: 20081020
  Transmission Date: 20090506
  Serious: Yes (Life-Threatening)
  Sender: FDA-Public Use
  Company Number: US-MERCK-0810USA01339

PATIENT
  Sex: Male

DRUGS (2)
  1. CANCIDAS [Suspect]
     Indication: PNEUMONIA FUNGAL
     Route: 042
     Dates: start: 20080204, end: 20080211
  2. CANCIDAS [Suspect]
     Route: 042
     Dates: start: 20080228, end: 20080228

REACTIONS (4)
  - DYSPNOEA [None]
  - EMOTIONAL DISORDER [None]
  - ERYTHEMA [None]
  - ILL-DEFINED DISORDER [None]
